FAERS Safety Report 9056554 (Version 1)
Quarter: 2013Q1

REPORT INFORMATION
  Report Type: Spontaneous
  Country: JP (occurrence: JP)
  Receive Date: 20130204
  Receipt Date: 20130204
  Transmission Date: 20140127
  Serious: Yes (Hospitalization)
  Sender: FDA-Public Use
  Company Number: JP-GLAXOSMITHKLINE-B0864212A

PATIENT
  Sex: Female

DRUGS (7)
  1. PAXIL [Suspect]
     Indication: PRODUCT USED FOR UNKNOWN INDICATION
     Route: 048
  2. CANDESARTAN CILEXETIL [Concomitant]
     Route: 048
  3. ETIZOLAM [Concomitant]
     Route: 048
  4. TOCOPHEROL NICOTINATE [Concomitant]
     Route: 048
  5. MECOBALAMIN [Concomitant]
     Route: 048
  6. RILMAZAFONE HYDROCHLORIDE [Concomitant]
     Route: 048
  7. NIFEDIPINE [Concomitant]
     Route: 048

REACTIONS (4)
  - Somnolence [Recovered/Resolved]
  - Dizziness [Recovered/Resolved]
  - Gait disturbance [Recovered/Resolved]
  - Speech disorder [Recovered/Resolved]
